FAERS Safety Report 5098749-3 (Version None)
Quarter: 2006Q3

REPORT INFORMATION
  Report Type: 
  Country: None (occurrence: None)
  Receive Date: 20060907
  Receipt Date: 20051111
  Transmission Date: 20061208
  Serious: Yes (Hospitalization)
  Sender: FDA-Public Use
  Company Number: 2005145284

PATIENT
  Age: 49 Year
  Sex: Female

DRUGS (10)
  1. PROSTACYCLIN [Suspect]
     Route: 042
     Dates: start: 20040618
  2. SILDENAFIL [Suspect]
     Route: 048
     Dates: start: 20051013
  3. SPIRONOLACTONE [Concomitant]
  4. CALCICHEW [Concomitant]
  5. WARFARIN SODIUM [Concomitant]
  6. BUMETANIDE [Concomitant]
  7. CLEXANE [Concomitant]
  8. MEBEVERINE [Concomitant]
  9. OXYGEN [Concomitant]
     Route: 055
  10. OMEPRAZOLE [Concomitant]
     Dates: start: 20050811

REACTIONS (8)
  - BODY TEMPERATURE INCREASED [None]
  - CHEST PAIN [None]
  - DYSPNOEA [None]
  - FLUSHING [None]
  - HYPOTENSION [None]
  - PALPITATIONS [None]
  - PARAESTHESIA [None]
  - THROAT TIGHTNESS [None]
